FAERS Safety Report 5280534-0 (Version None)
Quarter: 2007Q1

REPORT INFORMATION
  Report Type: 
  Country: None (occurrence: None)
  Receive Date: 20070329
  Receipt Date: 20070326
  Transmission Date: 20070707
  Serious: Yes (Other)
  Sender: FDA-Public Use
  Company Number: AUWYE176126MAR07

PATIENT

DRUGS (1)
  1. BENEFIX [Suspect]
     Dosage: UNKNOWN
     Route: 042

REACTIONS (1)
  - FACTOR IX INHIBITION [None]
